FAERS Safety Report 8406796 (Version 2)
Quarter: 2012Q4

REPORT INFORMATION
  Report Type: 
  Country: JP (occurrence: JP)
  Receive Date: 20120215
  Receipt Date: 20121210
  Transmission Date: 20130627
  Serious: Yes (Other)
  Sender: FDA-Public Use
  Company Number: JP-ROCHE-1039349

PATIENT
  Age: 3 None
  Sex: Female

DRUGS (2)
  1. XELODA [Suspect]
     Indication: LARGE INTESTINE CARCINOMA
     Dosage: Dosage is uncertain.
     Route: 048
  2. ELPLAT [Concomitant]
     Indication: LARGE INTESTINE CARCINOMA
     Dosage: Dosage is uncertain.
     Route: 041

REACTIONS (3)
  - Nausea [Recovering/Resolving]
  - Vomiting [Recovering/Resolving]
  - Anxiety [Recovering/Resolving]
